FAERS Safety Report 22647056 (Version 5)
Quarter: 2024Q1

REPORT INFORMATION
  Report Type: Spontaneous
  Country: US (occurrence: US)
  Receive Date: 20230627
  Receipt Date: 20240111
  Transmission Date: 20240410
  Serious: Yes (Other)
  Sender: FDA-Public Use
  Company Number: US-APELLIS PHARMACEUTICALS-APL-2023-002525

PATIENT
  Age: 91 Year
  Sex: Male

DRUGS (1)
  1. SYFOVRE [Suspect]
     Active Substance: PEGCETACOPLAN
     Indication: Product used for unknown indication
     Dosage: UNK
     Dates: start: 20230504

REACTIONS (7)
  - Visual impairment [Not Recovered/Not Resolved]
  - Retinal occlusive vasculitis [Not Recovered/Not Resolved]
  - Uveitis [Unknown]
  - Swelling of eyelid [Unknown]
  - Anterior segment neovascularisation [Unknown]
  - Pyrexia [Unknown]
  - Intraocular pressure increased [Unknown]

NARRATIVE: CASE EVENT DATE: 20230101
